FAERS Safety Report 14055787 (Version 1)
Quarter: 2017Q4

REPORT INFORMATION
  Report Type: Spontaneous
  Country: CR (occurrence: CR)
  Receive Date: 20171006
  Receipt Date: 20171006
  Transmission Date: 20180321
  Serious: Yes (Other)
  Sender: FDA-Public Use
  Company Number: CR-NOVOPROD-514733

PATIENT
  Age: 27 Year
  Sex: Female
  Weight: 106 kg

DRUGS (1)
  1. NOVOMIX 30 FLEXPEN [Suspect]
     Active Substance: INSULIN ASPART
     Indication: TYPE 1 DIABETES MELLITUS
     Dosage: 48 IU, QD
     Route: 058
     Dates: start: 201608

REACTIONS (4)
  - Product use issue [Unknown]
  - Exposure during pregnancy [Recovered/Resolved]
  - Glycosylated haemoglobin increased [Unknown]
  - Abortion spontaneous [Recovered/Resolved]

NARRATIVE: CASE EVENT DATE: 201608
